FAERS Safety Report 16730066 (Version 1)
Quarter: 2019Q3

REPORT INFORMATION
  Report Type: Report from Study
  Country: FR (occurrence: FR)
  Receive Date: 20190822
  Receipt Date: 20190822
  Transmission Date: 20191005
  Serious: Yes (Death)
  Sender: FDA-Public Use
  Company Number: FR-PACIRA-201400047

PATIENT
  Age: 57 Year
  Sex: Female

DRUGS (5)
  1. DEPOCYT [Suspect]
     Active Substance: CYTARABINE
     Indication: METASTASES TO MENINGES
     Dosage: 50 MG EVERY 14 DAYS (+/-2) FOR 5 CYCLES (FREQUENCY PER PROTOCOL)
     Route: 037
     Dates: start: 20120503
  2. DEPOCYT [Suspect]
     Active Substance: CYTARABINE
     Indication: METASTASES TO MENINGES
     Dosage: 50 MG EVERY 28 DAYS UNTIL PROGRESSION (FREQUENCY PER PROTOCOL)
     Route: 037
     Dates: end: 20130104
  3. CAPECITABINE. [Suspect]
     Active Substance: CAPECITABINE
     Indication: NEOPLASM MALIGNANT
     Dosage: 200 MG, FREQUENCY UNKNOWN, FREQUENCY : UNK
     Route: 048
     Dates: start: 20120423, end: 20130115
  4. LAPATINIB [Concomitant]
     Active Substance: LAPATINIB
     Indication: NEOPLASM MALIGNANT
     Dosage: 1600 MG, FREQUENCY UNKNOWN, FREQUENCY : UNK
     Route: 048
     Dates: start: 20120423, end: 20130115
  5. DEPOCYT [Suspect]
     Active Substance: CYTARABINE
     Indication: METASTASES TO MENINGES

REACTIONS (1)
  - Chills [Fatal]

NARRATIVE: CASE EVENT DATE: 20130116
